FAERS Safety Report 15534280 (Version 2)
Quarter: 2019Q2

REPORT INFORMATION
  Report Type: Report from Study
  Country: FR (occurrence: FR)
  Receive Date: 20181021
  Receipt Date: 20190425
  Transmission Date: 20190711
  Serious: Yes (Death, Hospitalization, Other)
  Sender: FDA-Public Use
  Company Number: FR-BRISTOL-MYERS SQUIBB COMPANY-BMS-2017-062381

PATIENT
  Age: 79 Year
  Sex: Male

DRUGS (1)
  1. NIVOLUMAB [Suspect]
     Active Substance: NIVOLUMAB
     Indication: LUNG NEOPLASM MALIGNANT
     Dosage: 330 MG, Q2WK
     Route: 042
     Dates: start: 20161202, end: 20170317

REACTIONS (3)
  - Psoriasis [Recovered/Resolved]
  - Malignant neoplasm progression [Fatal]
  - Sepsis [Fatal]

NARRATIVE: CASE EVENT DATE: 20170126
